FAERS Safety Report 8589079-3 (Version None)
Quarter: 2012Q3

REPORT INFORMATION
  Report Type: 
  Country: None (occurrence: None)
  Receive Date: 20120731
  Receipt Date: 20120720
  Transmission Date: 20120928
  Serious: Yes (Other)
  Sender: FDA-Public Use
  Company Number: DSA_58651_2012

PATIENT

DRUGS (6)
  1. THERAPEUTIC RADIOPHARMACEUTICALS (THERAPEUTIC RADIOPHARMACEUTICALS) [Suspect]
     Indication: OESOPHAGEAL CARCINOMA
     Dosage: (10 MV X-RAYS, 2 GY DAILY)
  2. CISPLATIN [Suspect]
     Indication: OESOPHAGEAL CARCINOMA
     Dosage: (DF)
  3. NEDAPLATIN (NEDAPLATIN) [Suspect]
     Indication: OESOPHAGEAL CARCINOMA
     Dosage: (DF)
  4. FLUOROURACIL [Suspect]
     Indication: OESOPHAGEAL CARCINOMA
     Dosage: (DF)
  5. I.V. SOLUTIONS [Concomitant]
  6. FLUDEOXYGLUCOSE [Concomitant]

REACTIONS (1)
  - NAUSEA [None]
